FAERS Safety Report 9926078 (Version 2)
Quarter: 2014Q2

REPORT INFORMATION
  Report Type: Spontaneous
  Country: DE (occurrence: DE)
  Receive Date: 20140226
  Receipt Date: 20140425
  Transmission Date: 20141212
  Serious: Yes (Other)
  Sender: FDA-Public Use
  Company Number: DE-PFIZER INC-2014055127

PATIENT
  Age: 36 Year
  Sex: Female
  Weight: 129 kg

DRUGS (10)
  1. CITALOPRAM HBR [Suspect]
     Indication: ANXIETY DISORDER
     Dosage: 10 MG, 1X/DAY
     Route: 048
     Dates: start: 20120701, end: 20121221
  2. CITALOPRAM HBR [Suspect]
     Indication: PANIC DISORDER
  3. TREVILOR RETARD [Suspect]
     Indication: ANXIETY DISORDER
     Dosage: 75 MG, 1X/DAY
     Route: 048
     Dates: start: 20120330, end: 20120501
  4. TREVILOR RETARD [Suspect]
     Indication: PANIC DISORDER
  5. L-THYROXIN [Concomitant]
     Indication: HYPOTHYROIDISM
     Dosage: 125 UG, 1X/DAY
     Route: 048
     Dates: start: 20120330, end: 20121221
  6. FRAGMIN [Concomitant]
     Indication: COAGULOPATHY
     Dosage: 7500 IU, 1X/DAY
     Route: 058
     Dates: start: 20120503, end: 20121221
  7. ASS [Concomitant]
     Indication: COAGULOPATHY
     Dosage: 100 MG, 1X/DAY
     Route: 048
     Dates: start: 20120510, end: 20121115
  8. FOLIO [Concomitant]
     Indication: PROPHYLAXIS OF NEURAL TUBE DEFECT
     Dosage: 0.4 MG, 1X/DAY
     Route: 048
     Dates: start: 20120502, end: 20121217
  9. METOBETA [Concomitant]
     Dosage: UNK
  10. DALTEPARIN [Concomitant]
     Dosage: UNK

REACTIONS (3)
  - Gestational diabetes [Unknown]
  - Premature rupture of membranes [Unknown]
  - Hypertension [Unknown]
